FAERS Safety Report 6038058-9 (Version None)
Quarter: 2009Q1

REPORT INFORMATION
  Report Type: 
  Country: None (occurrence: None)
  Receive Date: 20090113
  Receipt Date: 20090113
  Transmission Date: 20090719
  Serious: No
  Sender: FDA-Public Use
  Company Number: None

PATIENT
  Age: 73 Year
  Sex: Female

DRUGS (1)
  1. NALOXONE [Suspect]
     Indication: SOMNOLENCE
     Dosage: 0.4MG ONCE IV
     Route: 042
     Dates: start: 20090109

REACTIONS (2)
  - FLUSHING [None]
  - SOMNOLENCE [None]
